FAERS Safety Report 24841482 (Version 3)
Quarter: 2025Q2

REPORT INFORMATION
  Report Type: Spontaneous
  Country: US (occurrence: US)
  Receive Date: 20250114
  Receipt Date: 20250408
  Transmission Date: 20250717
  Serious: No
  Sender: PFIZER
  Company Number: US-PFIZER INC-202500007150

PATIENT
  Age: 14 Year
  Sex: Male

DRUGS (4)
  1. LITFULO [Suspect]
     Active Substance: RITLECITINIB TOSYLATE
     Indication: Alopecia areata
     Dosage: 50 MG, 1X/DAY
     Route: 048
     Dates: start: 20240323
  2. AZELASTINE [Concomitant]
     Active Substance: AZELASTINE
  3. BENZONATATE [Concomitant]
     Active Substance: BENZONATATE
  4. MINOXIDIL [Concomitant]
     Active Substance: MINOXIDIL

REACTIONS (1)
  - Product dose omission issue [Unknown]
